FAERS Safety Report 18007052 (Version 1)
Quarter: 2020Q3

REPORT INFORMATION
  Report Type: Spontaneous
  Country: JP (occurrence: JP)
  Receive Date: 20200710
  Receipt Date: 20200710
  Transmission Date: 20201103
  Serious: Yes (Other)
  Sender: FDA-Public Use
  Company Number: JP-PFIZER INC-2020257215

PATIENT

DRUGS (2)
  1. PRECEDEX [Suspect]
     Active Substance: DEXMEDETOMIDINE HYDROCHLORIDE
     Dosage: UNK
     Route: 042
  2. FENTANYL CITRATE. [Concomitant]
     Active Substance: FENTANYL CITRATE

REACTIONS (2)
  - Neuralgia [Not Recovered/Not Resolved]
  - Neuropathy peripheral [Unknown]
